FAERS Safety Report 10743191 (Version 1)
Quarter: 2015Q1

REPORT INFORMATION
  Report Type: Spontaneous
  Country: US (occurrence: US)
  Receive Date: 20150127
  Receipt Date: 20150127
  Transmission Date: 20150721
  Serious: No
  Sender: FDA-Public Use
  Company Number: US-GLAXOSMITHKLINE-A1064194A

PATIENT

DRUGS (24)
  1. WELLBUTRIN [Suspect]
     Active Substance: BUPROPION HYDROCHLORIDE
     Indication: PRODUCT USED FOR UNKNOWN INDICATION
  2. IBUPROFEN. [Concomitant]
     Active Substance: IBUPROFEN
  3. ADVAIR DISKUS [Concomitant]
     Active Substance: FLUTICASONE PROPIONATE\SALMETEROL XINAFOATE
  4. LEVEMIR [Concomitant]
     Active Substance: INSULIN DETEMIR
  5. ZANTAC [Concomitant]
     Active Substance: RANITIDINE HYDROCHLORIDE
  6. LASIX [Concomitant]
     Active Substance: FUROSEMIDE
  7. NEURONTIN [Concomitant]
     Active Substance: GABAPENTIN
  8. VISTARIL [Concomitant]
     Active Substance: HYDROXYZINE PAMOATE
  9. POTASSIUM [Concomitant]
     Active Substance: POTASSIUM
  10. DUONEB [Concomitant]
     Active Substance: ALBUTEROL SULFATE\IPRATROPIUM BROMIDE
  11. PROAIR HFA [Concomitant]
     Active Substance: ALBUTEROL SULFATE
  12. ATENOLOL. [Concomitant]
     Active Substance: ATENOLOL
  13. METOLAZONE. [Concomitant]
     Active Substance: METOLAZONE
  14. NORCO [Concomitant]
     Active Substance: ACETAMINOPHEN\HYDROCODONE BITARTRATE
  15. CHANTIX [Concomitant]
     Active Substance: VARENICLINE TARTRATE
  16. PROCARDIA XL [Concomitant]
     Active Substance: NIFEDIPINE
  17. VENTOLIN [Concomitant]
     Active Substance: ALBUTEROL SULFATE
  18. GLUCOTROL XL [Concomitant]
     Active Substance: GLIPIZIDE
  19. METFORMIN [Concomitant]
     Active Substance: METFORMIN HYDROCHLORIDE
  20. ATACAND [Concomitant]
     Active Substance: CANDESARTAN CILEXETIL
  21. CRESTOR [Concomitant]
     Active Substance: ROSUVASTATIN CALCIUM
  22. SPIRIVA [Concomitant]
     Active Substance: TIOTROPIUM BROMIDE MONOHYDRATE
  23. PAXIL [Concomitant]
     Active Substance: PAROXETINE HYDROCHLORIDE
  24. ZYRTEC [Concomitant]
     Active Substance: CETIRIZINE HYDROCHLORIDE

REACTIONS (1)
  - Drug hypersensitivity [Unknown]
